FAERS Safety Report 21623026 (Version 7)
Quarter: 2025Q2

REPORT INFORMATION
  Report Type: Spontaneous
  Country: US (occurrence: US)
  Receive Date: 20221121
  Receipt Date: 20250618
  Transmission Date: 20250716
  Serious: Yes (Other)
  Sender: PFIZER
  Company Number: US-PFIZER INC-PV202200106231

PATIENT
  Age: 67 Year
  Sex: Male

DRUGS (2)
  1. XELJANZ XR [Suspect]
     Active Substance: TOFACITINIB CITRATE
     Indication: Rheumatoid arthritis
     Dosage: 11 MG TAKE 1 TABLET BY MOUTH EVERY DAY AS DIRECTED BY PHYSICIAN
     Route: 048
     Dates: start: 201912
  2. XELJANZ XR [Suspect]
     Active Substance: TOFACITINIB CITRATE

REACTIONS (6)
  - Neoplasm malignant [Unknown]
  - Spinal operation [Unknown]
  - Pain [Not Recovered/Not Resolved]
  - Musculoskeletal stiffness [Unknown]
  - Condition aggravated [Unknown]
  - Arthropathy [Unknown]

NARRATIVE: CASE EVENT DATE: 20230101
